FAERS Safety Report 19508669 (Version 3)
Quarter: 2022Q2

REPORT INFORMATION
  Report Type: Spontaneous
  Country: US (occurrence: None)
  Receive Date: 20210709
  Receipt Date: 20220621
  Transmission Date: 20220721
  Serious: Yes (Other)
  Sender: FDA-Public Use
  Company Number: US-ROCHE-2866126

PATIENT
  Sex: Female

DRUGS (2)
  1. OCREVUS [Suspect]
     Active Substance: OCRELIZUMAB
     Indication: Multiple sclerosis
     Route: 042
     Dates: start: 20201231
  2. OCREVUS [Suspect]
     Active Substance: OCRELIZUMAB
     Dates: start: 202107

REACTIONS (3)
  - Multiple sclerosis relapse [Unknown]
  - Memory impairment [Unknown]
  - Arthralgia [Unknown]
